FAERS Safety Report 21821172 (Version 1)
Quarter: 2023Q1

REPORT INFORMATION
  Report Type: Spontaneous
  Country: PL (occurrence: None)
  Receive Date: 20230105
  Receipt Date: 20230105
  Transmission Date: 20230417
  Serious: Yes (Death, Other)
  Sender: FDA-Public Use
  Company Number: PL-ROCHE-3255805

PATIENT
  Age: 70 Year
  Sex: Male

DRUGS (1)
  1. ALECENSA [Suspect]
     Active Substance: ALECTINIB HYDROCHLORIDE
     Indication: Lung adenocarcinoma
     Route: 048
     Dates: start: 201908

REACTIONS (9)
  - Death [Fatal]
  - Bradycardia [Unknown]
  - Gastrointestinal stromal tumour [Unknown]
  - Anaemia [Unknown]
  - Hyponatraemia [Unknown]
  - Gastric cancer [Unknown]
  - Therapy partial responder [Unknown]
  - General physical health deterioration [Unknown]
  - Asthenia [Unknown]

NARRATIVE: CASE EVENT DATE: 20220601
